FAERS Safety Report 8327551 (Version 3)
Quarter: 2012Q4

REPORT INFORMATION
  Report Type: 
  Country: US (occurrence: US)
  Receive Date: 20120109
  Receipt Date: 20121001
  Transmission Date: 20130627
  Serious: Yes (Hospitalization)
  Sender: FDA-Public Use
  Company Number: US-GLAXOSMITHKLINE-A0960427A

PATIENT
  Age: 84 Year
  Sex: Female
  Weight: 59.2 kg

DRUGS (3)
  1. ALKERAN [Suspect]
     Indication: MULTIPLE MYELOMA
     Dosage: 2MG Unknown
     Route: 048
     Dates: start: 20110620, end: 20120529
  2. LYRICA [Concomitant]
     Route: 048
     Dates: start: 20111210
  3. VALTREX [Concomitant]
     Route: 048
     Dates: start: 20111210

REACTIONS (2)
  - Cerebral vasoconstriction [Recovered/Resolved]
  - Headache [Recovered/Resolved]
